FAERS Safety Report 20480457 (Version 1)
Quarter: 2022Q1

REPORT INFORMATION
  Report Type: Spontaneous
  Country: US (occurrence: US)
  Receive Date: 20220216
  Receipt Date: 20220216
  Transmission Date: 20220423
  Serious: No
  Sender: FDA-Public Use
  Company Number: US-GW PHARMA-202202USGW00719

PATIENT
  Sex: Female
  Weight: 37.2 kg

DRUGS (1)
  1. EPIDIOLEX [Suspect]
     Active Substance: CANNABIDIOL
     Indication: Product used for unknown indication
     Dosage: 15.05 MG/KG/DAY, 280 MILLIGRAM, BID
     Route: 048
     Dates: start: 20190827

REACTIONS (3)
  - Seizure [Unknown]
  - Feeding disorder [Unknown]
  - Product dose omission issue [Unknown]
